FAERS Safety Report 18152883 (Version 2)
Quarter: 2021Q1

REPORT INFORMATION
  Report Type: Spontaneous
  Country: DE (occurrence: DE)
  Receive Date: 20200814
  Receipt Date: 20210108
  Transmission Date: 20210419
  Serious: Yes (Other)
  Sender: FDA-Public Use
  Company Number: DE-BAUSCH-BL-2020-022462

PATIENT
  Age: 65 Year
  Sex: Female

DRUGS (1)
  1. OFLOXACIN?OPHTAL SINE 3 MG/ML AUGENTROPFEN [Suspect]
     Active Substance: OFLOXACIN
     Indication: BLEPHARITIS
     Dosage: 3? 4 TIMES DAILY
     Route: 047
     Dates: start: 20200804, end: 202008

REACTIONS (2)
  - Stevens-Johnson syndrome [Recovered/Resolved]
  - Erythema [Recovered/Resolved]

NARRATIVE: CASE EVENT DATE: 20200805
